FAERS Safety Report 19056867 (Version 1)
Quarter: 2021Q1

REPORT INFORMATION
  Report Type: Spontaneous
  Country: US (occurrence: US)
  Receive Date: 20210325
  Receipt Date: 20210325
  Transmission Date: 20210420
  Serious: Yes (Hospitalization)
  Sender: FDA-Public Use
  Company Number: None

PATIENT
  Age: 43 Year
  Sex: Male

DRUGS (1)
  1. ADEMPAS [Suspect]
     Active Substance: RIOCIGUAT
     Indication: PULMONARY HYPERTENSION
     Route: 048
     Dates: start: 20210112, end: 20210305

REACTIONS (3)
  - Quality of life decreased [None]
  - Dyspnoea exertional [None]
  - Exercise tolerance decreased [None]

NARRATIVE: CASE EVENT DATE: 20210325
